FAERS Safety Report 16957253 (Version 1)
Quarter: 2019Q4

REPORT INFORMATION
  Report Type: Spontaneous
  Country: US (occurrence: US)
  Receive Date: 20191024
  Receipt Date: 20191024
  Transmission Date: 20200122
  Serious: Yes (Other)
  Sender: FDA-Public Use
  Company Number: US-HIKMA PHARMACEUTICALS USA INC.-US-H14001-19-49480

PATIENT
  Age: 29 Year
  Sex: Male

DRUGS (1)
  1. HYDROCHLOROTHIAZIDE AND LISINOPRIL [Suspect]
     Active Substance: HYDROCHLOROTHIAZIDE\LISINOPRIL
     Indication: HYPERTENSION
     Dosage: FORM STRENGTH: 10/12.5 MG
     Route: 065

REACTIONS (2)
  - Postural orthostatic tachycardia syndrome [Recovering/Resolving]
  - Condition aggravated [Recovering/Resolving]
